FAERS Safety Report 7638791-9 (Version None)
Quarter: 2011Q3

REPORT INFORMATION
  Report Type: 
  Country: None (occurrence: None)
  Receive Date: 20110727
  Receipt Date: 20110718
  Transmission Date: 20111222
  Serious: Yes (Other)
  Sender: FDA-Public Use
  Company Number: US-ROCHE-791212

PATIENT

DRUGS (3)
  1. INTERFERON ALFA [Suspect]
     Dosage: 10 MU/ME2 DURING SECOND CYCLE.
     Route: 065
  2. BEVACIZUMAB [Suspect]
     Dosage: DAY1 OF EACH CYCLE.
     Route: 042
  3. INTERFERON ALFA [Suspect]
     Dosage: 5 MU/ME2 DURING FIRST CYCLE.
     Route: 065

REACTIONS (7)
  - PROTEINURIA [None]
  - PULMONARY EMBOLISM [None]
  - SUBDURAL HAEMATOMA [None]
  - HAEMATURIA [None]
  - ALANINE AMINOTRANSFERASE ABNORMAL [None]
  - ASPARTATE AMINOTRANSFERASE ABNORMAL [None]
  - CEREBROVASCULAR ACCIDENT [None]
